FAERS Safety Report 16398116 (Version 1)
Quarter: 2019Q2

REPORT INFORMATION
  Report Type: Spontaneous
  Country: US (occurrence: US)
  Receive Date: 20190606
  Receipt Date: 20190606
  Transmission Date: 20190711
  Serious: Yes (Other)
  Sender: FDA-Public Use
  Company Number: US-MYLANLABS-2019M1052043

PATIENT
  Age: 75 Year
  Sex: Female

DRUGS (3)
  1. DILTIAZEM. [Suspect]
     Active Substance: DILTIAZEM
     Indication: CREST SYNDROME
     Route: 065
  2. GLYCERYL TRINITRATE [Suspect]
     Active Substance: NITROGLYCERIN
     Indication: CREST SYNDROME
     Route: 061
  3. SILDENAFIL. [Suspect]
     Active Substance: SILDENAFIL
     Indication: CREST SYNDROME
     Route: 065

REACTIONS (1)
  - Drug ineffective [Unknown]
